FAERS Safety Report 13318349 (Version 1)
Quarter: 2017Q1

REPORT INFORMATION
  Report Type: Spontaneous
  Country: AU (occurrence: AU)
  Receive Date: 20170310
  Receipt Date: 20170310
  Transmission Date: 20170428
  Serious: Yes (Other)
  Sender: FDA-Public Use
  Company Number: AU-009507513-1703AUS002889

PATIENT
  Age: 6 Year
  Sex: Female
  Weight: 23 kg

DRUGS (1)
  1. SINGULAIR [Suspect]
     Active Substance: MONTELUKAST SODIUM
     Dosage: 4 MG, DAILY
     Route: 048
     Dates: start: 201510, end: 20160511

REACTIONS (5)
  - Nightmare [Recovered/Resolved with Sequelae]
  - Dizziness [Recovered/Resolved with Sequelae]
  - Headache [Recovered/Resolved with Sequelae]
  - Insomnia [Recovered/Resolved with Sequelae]
  - Abnormal behaviour [Recovered/Resolved with Sequelae]

NARRATIVE: CASE EVENT DATE: 20160513
